FAERS Safety Report 16288416 (Version 11)
Quarter: 2021Q2

REPORT INFORMATION
  Report Type: Report from Study
  Country: None (occurrence: NL)
  Receive Date: 20190509
  Receipt Date: 20210615
  Transmission Date: 20210716
  Serious: Yes (Other)
  Sender: FDA-Public Use
  Company Number: NL-ABBVIE-16K-114-1818899-00

PATIENT
  Age: 65 Year
  Sex: Male

DRUGS (8)
  1. DUODOPA [Suspect]
     Active Substance: CARBIDOPA\LEVODOPA
     Dosage: MD: 3.9ML, CD: 2.1ML/H, ED: 2.1ML/H
     Route: 050
  2. DUODOPA [Suspect]
     Active Substance: CARBIDOPA\LEVODOPA
     Dosage: MD: 3.9ML, CD: 2.3ML/H, ED: 2.3ML.
     Route: 050
  3. MOVICOLON [Concomitant]
     Active Substance: POLYETHYLENE GLYCOL 3350\POTASSIUM CHLORIDE\SODIUM BICARBONATE\SODIUM CHLORIDE
     Indication: CONSTIPATION
     Dosage: IF NEEDED
  4. SYMMETREL [Concomitant]
     Active Substance: AMANTADINE HYDROCHLORIDE
     Indication: DYSKINESIA
  5. DUODOPA [Suspect]
     Active Substance: CARBIDOPA\LEVODOPA
     Indication: PARKINSON^S DISEASE
     Dosage: MORNING DOSE: 6.0 CONTINUOUS DOSE: 5.0 EXTRA DOSE: 4.5 NIGHT DOSE: 4.2
     Route: 050
     Dates: start: 20101103
  6. DUODOPA [Suspect]
     Active Substance: CARBIDOPA\LEVODOPA
     Dosage: MD 12.9, CD 3, ED 2
     Route: 050
  7. MADOPAR HBS 125 [Concomitant]
     Indication: PRODUCT USED FOR UNKNOWN INDICATION
     Dosage: DURING NIGHT
  8. DUODOPA [Suspect]
     Active Substance: CARBIDOPA\LEVODOPA
     Dosage: EVENING DOSE INCREASED WITH 0.5 ML
     Route: 050

REACTIONS (46)
  - Memory impairment [Recovering/Resolving]
  - Fatigue [Not Recovered/Not Resolved]
  - Abnormal behaviour [Unknown]
  - Movement disorder [Recovered/Resolved]
  - Myalgia [Not Recovered/Not Resolved]
  - Heart valve incompetence [Recovering/Resolving]
  - Musculoskeletal stiffness [Unknown]
  - Middle insomnia [Recovered/Resolved]
  - Headache [Not Recovered/Not Resolved]
  - Weight decreased [Not Recovered/Not Resolved]
  - Abnormal dreams [Not Recovered/Not Resolved]
  - Dysphagia [Not Recovered/Not Resolved]
  - Sitting disability [Recovered/Resolved]
  - Choking [Not Recovered/Not Resolved]
  - Stress [Not Recovered/Not Resolved]
  - Mobility decreased [Not Recovered/Not Resolved]
  - Tension [Not Recovered/Not Resolved]
  - Muscle rigidity [Not Recovered/Not Resolved]
  - Hyperkinesia [Not Recovered/Not Resolved]
  - Dyskinesia [Recovered/Resolved]
  - Hypokinesia [Not Recovered/Not Resolved]
  - Stoma site erythema [Recovered/Resolved]
  - Therapeutic product effect incomplete [Not Recovered/Not Resolved]
  - Fear [Not Recovered/Not Resolved]
  - Speech disorder [Not Recovered/Not Resolved]
  - Fine motor skill dysfunction [Unknown]
  - Tremor [Recovered/Resolved]
  - Unevaluable event [Not Recovered/Not Resolved]
  - Tremor [Not Recovered/Not Resolved]
  - Poor quality sleep [Not Recovered/Not Resolved]
  - Salivary hypersecretion [Unknown]
  - On and off phenomenon [Not Recovered/Not Resolved]
  - Device difficult to use [Not Recovered/Not Resolved]
  - Coronary artery stenosis [Recovering/Resolving]
  - Cognitive disorder [Unknown]
  - Dyspnoea [Not Recovered/Not Resolved]
  - Dyskinesia [Recovered/Resolved]
  - Stoma site irritation [Recovered/Resolved]
  - Hallucination [Unknown]
  - Stoma site erythema [Not Recovered/Not Resolved]
  - Deep brain stimulation [Unknown]
  - Nocturia [Recovering/Resolving]
  - Middle insomnia [Unknown]
  - Feeling abnormal [Not Recovered/Not Resolved]
  - Nightmare [Recovering/Resolving]
  - Protein intolerance [Not Recovered/Not Resolved]

NARRATIVE: CASE EVENT DATE: 20171114
